FAERS Safety Report 7524466-3 (Version None)
Quarter: 2011Q2

REPORT INFORMATION
  Report Type: 
  Country: None (occurrence: None)
  Receive Date: 20110606
  Receipt Date: 20110526
  Transmission Date: 20111010
  Serious: Yes (Other)
  Sender: FDA-Public Use
  Company Number: AU-JNJFOC-20110512419

PATIENT
  Sex: Male

DRUGS (10)
  1. JANUVIA [Concomitant]
     Dosage: IN THE MORNING
     Route: 065
  2. METFORMIN HCL [Concomitant]
     Route: 065
  3. TOPAMAX [Suspect]
     Indication: WEIGHT INCREASED
     Dosage: 75 MG IN THE MORNING AND 50 MG IN THE EVENING STARTED ABOUT 9 MONTHS AGO
     Route: 048
  4. CYMBALTA [Concomitant]
     Dosage: IN THE MORNING
     Route: 065
  5. FISH OIL CAPSULE [Concomitant]
     Route: 065
  6. GLUCOBAY [Concomitant]
     Route: 065
  7. LIPITOR [Concomitant]
     Dosage: AT NIGHT
     Route: 065
  8. PANTOPRAZOLE [Concomitant]
     Dosage: IN THE MORNING
     Route: 065
  9. MODAFINIL [Concomitant]
     Route: 065
  10. IRBESARTAN + HYDROCHLOROTHIAZIDE [Concomitant]
     Dosage: 300 MG/12.5 MG IN THE MORNING
     Route: 065

REACTIONS (2)
  - WEIGHT DECREASED [None]
  - THYROID NEOPLASM [None]
